FAERS Safety Report 9771279 (Version 2)
Quarter: 2013Q4

REPORT INFORMATION
  Report Type: Spontaneous
  Country: US (occurrence: US)
  Receive Date: 20131218
  Receipt Date: 20131218
  Transmission Date: 20140711
  Serious: Yes (Death, Hospitalization, Other)
  Sender: FDA-Public Use
  Company Number: US-ONYX-2012-0913

PATIENT
  Age: 76 Year
  Sex: Female
  Weight: 65.83 kg

DRUGS (2)
  1. KYPROLIS [Suspect]
     Indication: PLASMA CELL MYELOMA
     Route: 042
     Dates: start: 20120822, end: 20121002
  2. TORISEL [Concomitant]
     Indication: PLASMA CELL MYELOMA

REACTIONS (19)
  - Plasma cell myeloma [Fatal]
  - Renal failure acute [Not Recovered/Not Resolved]
  - Pleural effusion [Unknown]
  - Dyspnoea [Recovered/Resolved]
  - Haemoptysis [Recovered/Resolved]
  - Asthenia [Not Recovered/Not Resolved]
  - Clostridium difficile colitis [Recovered/Resolved]
  - Febrile neutropenia [Recovered/Resolved]
  - Lobar pneumonia [Unknown]
  - Nausea [Unknown]
  - Vomiting [Recovered/Resolved]
  - Blood pressure decreased [Unknown]
  - Platelet count decreased [Recovered/Resolved]
  - Hypercalcaemia [Not Recovered/Not Resolved]
  - Cough [Unknown]
  - Fatigue [Unknown]
  - Palpitations [Unknown]
  - Musculoskeletal chest pain [Unknown]
  - Eyelid ptosis [Unknown]
